FAERS Safety Report 8816773 (Version 1)
Quarter: 2012Q4

REPORT INFORMATION
  Report Type: Spontaneous
  Country: US (occurrence: None)
  Receive Date: 20121001
  Receipt Date: 20121001
  Transmission Date: 20130627
  Serious: Yes (Hospitalization)
  Sender: FDA-Public Use
  Company Number: UTC-023389

PATIENT
  Age: 46 Year
  Sex: Female

DRUGS (12)
  1. TYVASO (6 MICROGRAM, AEROSOL FOR INHALATION) (TREPROSTINIL SODIUM) [Suspect]
     Indication: PULMONARY ARTERIAL HYPERTENSION
     Dosage: 9 breaths (54 mcg, 4 in 1 D), Inhalation
     Route: 055
     Dates: start: 20110525
  2. PEPCID (FAMOTIDINE) [Concomitant]
  3. REGLAN (METOCLOPRAMIDE) [Concomitant]
  4. METHYLPREDNISOL (METHYLPREDNISOLONE) [Concomitant]
  5. REVATIO (SILDENAFIL CITRATE) [Concomitant]
  6. LISINOPRIL [Concomitant]
  7. COREG (CARVEDILOL) [Concomitant]
  8. COREG (CARVEDILOL) [Concomitant]
  9. LIPITOR (ATORVASTATIN CALCIUM) [Concomitant]
  10. CYMBALTA (DULOXETINE HYDROCHLORIDE) [Concomitant]
  11. XANAX (ALPRAZOLAM) [Concomitant]
  12. CELEXA (CITALOPRAM HYDROBROMIDE) [Concomitant]

REACTIONS (2)
  - Headache [None]
  - Blood pressure increased [None]
